FAERS Safety Report 7054282-0 (Version None)
Quarter: 2010Q4

REPORT INFORMATION
  Report Type: 
  Country: None (occurrence: None)
  Receive Date: 20101015
  Receipt Date: 20101006
  Transmission Date: 20110411
  Serious: Yes (Other)
  Sender: FDA-Public Use
  Company Number: 719202

PATIENT
  Age: 93 Year
  Sex: Female

DRUGS (1)
  1. PRECEDEX [Suspect]
     Indication: SEDATION

REACTIONS (3)
  - ASPIRATION [None]
  - HYPOXIA [None]
  - SALIVARY HYPERSECRETION [None]
